FAERS Safety Report 15265628 (Version 1)
Quarter: 2018Q3

REPORT INFORMATION
  Report Type: Report from Study
  Country: US (occurrence: US)
  Receive Date: 20180810
  Receipt Date: 20180810
  Transmission Date: 20181010
  Serious: No
  Sender: FDA-Public Use
  Company Number: PHEH2018US032660

PATIENT
  Sex: Female

DRUGS (1)
  1. ENTRESTO [Suspect]
     Active Substance: SACUBITRIL\VALSARTAN
     Indication: CARDIAC FAILURE CHRONIC
     Dosage: 50 MG, (24 MG SACUBITRIL, 26 MG VALSARTAN)
     Route: 048

REACTIONS (4)
  - Wrong technique in product usage process [Unknown]
  - Underdose [Unknown]
  - Drug ineffective [Unknown]
  - Drug prescribing error [Unknown]
